FAERS Safety Report 15402657 (Version 1)
Quarter: 2018Q3

REPORT INFORMATION
  Report Type: Spontaneous
  Country: US (occurrence: US)
  Receive Date: 20180917
  Receipt Date: 20180917
  Transmission Date: 20181010
  Serious: Yes (Death)
  Sender: FDA-Public Use
  Company Number: None

PATIENT
  Age: 55 Year
  Sex: Male

DRUGS (8)
  1. ALLOPURINOL. [Concomitant]
     Active Substance: ALLOPURINOL
  2. MAGNESIUM [Concomitant]
     Active Substance: MAGNESIUM
  3. ENOXAPARIN [Suspect]
     Active Substance: ENOXAPARIN
     Indication: ACUTE LEFT VENTRICULAR FAILURE
     Dosage: ?          OTHER ROUTE:UNDER THE SKIN DAILY?
     Dates: start: 20170126
  4. METOPROLOL SUCCINATE ER [Concomitant]
     Active Substance: METOPROLOL SUCCINATE
  5. POTASSIUM [Concomitant]
     Active Substance: POTASSIUM
  6. VARFARIN SODIUM [Concomitant]
  7. ENOXAPARIN [Suspect]
     Active Substance: ENOXAPARIN
     Indication: CARDIAC FAILURE CONGESTIVE
     Dosage: ?          OTHER ROUTE:UNDER THE SKIN DAILY?
     Dates: start: 20170126
  8. SPIRONOLACTONE. [Concomitant]
     Active Substance: SPIRONOLACTONE

REACTIONS (1)
  - Death [None]

NARRATIVE: CASE EVENT DATE: 20180912
